FAERS Safety Report 14255649 (Version 2)
Quarter: 2017Q4

REPORT INFORMATION
  Report Type: Report from Study
  Country: JP (occurrence: JP)
  Receive Date: 20171206
  Receipt Date: 20171229
  Transmission Date: 20180321
  Serious: Yes (Hospitalization)
  Sender: FDA-Public Use
  Company Number: JP-CELGENEUS-JPN-20171109064

PATIENT
  Age: 68 Year
  Sex: Male

DRUGS (5)
  1. VICCLOX [Concomitant]
     Active Substance: ACYCLOVIR SODIUM
     Indication: ADULT T-CELL LYMPHOMA/LEUKAEMIA
     Dosage: 200 MILLIGRAM
     Route: 048
     Dates: start: 20171103, end: 20171108
  2. THEOPHYLLINE [Concomitant]
     Active Substance: THEOPHYLLINE ANHYDROUS
     Indication: ADULT T-CELL LYMPHOMA/LEUKAEMIA
     Dosage: 200 MILLIGRAM
     Route: 048
     Dates: start: 20171103, end: 20171108
  3. BAYASPIRIN [Concomitant]
     Active Substance: ASPIRIN
     Indication: ADULT T-CELL LYMPHOMA/LEUKAEMIA
     Dosage: 100 MILLIGRAM
     Route: 048
     Dates: start: 20171103, end: 20171108
  4. REVLIMID [Suspect]
     Active Substance: LENALIDOMIDE
     Indication: ADULT T-CELL LYMPHOMA/LEUKAEMIA
     Dosage: 10 MILLIGRAM
     Route: 048
     Dates: start: 20171103, end: 20171108
  5. ITRIZOLE [Concomitant]
     Active Substance: ITRACONAZOLE
     Indication: ADULT T-CELL LYMPHOMA/LEUKAEMIA
     Dosage: 20 MILLILITER
     Route: 048
     Dates: start: 20171103, end: 20171108

REACTIONS (1)
  - Adult T-cell lymphoma/leukaemia [Not Recovered/Not Resolved]

NARRATIVE: CASE EVENT DATE: 20171108
